FAERS Safety Report 20346775 (Version 1)
Quarter: 2022Q1

REPORT INFORMATION
  Report Type: Spontaneous
  Country: US (occurrence: US)
  Receive Date: 20220118
  Receipt Date: 20220118
  Transmission Date: 20220423
  Serious: No
  Sender: FDA-Public Use
  Company Number: US-CHIASMA-2021CHI00212

PATIENT
  Sex: Female

DRUGS (1)
  1. MYCAPSSA [Suspect]
     Active Substance: OCTREOTIDE
     Dosage: 40 MG/DAY
     Route: 048

REACTIONS (1)
  - Nausea [Unknown]
